FAERS Safety Report 25214120 (Version 1)
Quarter: 2025Q2

REPORT INFORMATION
  Report Type: Other
  Country: TN (occurrence: TN)
  Receive Date: 20250418
  Receipt Date: 20250418
  Transmission Date: 20250716
  Serious: Yes (Hospitalization, Other)
  Sender: BRECKENRIDGE PHARMACEUTICAL, INC.
  Company Number: TN-Breckenridge Pharmaceutical, Inc.-2175123

PATIENT
  Age: 38 Year
  Sex: Female

DRUGS (2)
  1. BENDAMUSTINE [Suspect]
     Active Substance: BENDAMUSTINE
     Indication: Lymphoma
  2. BRENTUXIMAB [Concomitant]
     Active Substance: BRENTUXIMAB

REACTIONS (1)
  - Acute generalised exanthematous pustulosis [Recovered/Resolved]
